FAERS Safety Report 13877726 (Version 2)
Quarter: 2017Q3

REPORT INFORMATION
  Report Type: Report from Study
  Country: BR (occurrence: BR)
  Receive Date: 20170817
  Receipt Date: 20170828
  Transmission Date: 20171127
  Serious: Yes (Death, Hospitalization)
  Sender: FDA-Public Use
  Company Number: PHHY2017BR119939

PATIENT
  Age: 98 Year
  Sex: Female
  Weight: 80 kg

DRUGS (2)
  1. DIOVAN AMLO FIX [Suspect]
     Active Substance: AMLODIPINE\VALSARTAN
     Indication: HYPERTENSION
     Dosage: 1 DF (AMLODIPINE 5 MG, VALSARTAN 160 MG), QD
     Route: 048
  2. DIOVAN [Suspect]
     Active Substance: VALSARTAN
     Indication: PRODUCT USED FOR UNKNOWN INDICATION
     Route: 065

REACTIONS (6)
  - Femur fracture [Unknown]
  - Pain [Unknown]
  - Mobility decreased [Unknown]
  - Feeling abnormal [Unknown]
  - Death [Fatal]
  - Discomfort [Unknown]

NARRATIVE: CASE EVENT DATE: 20170805
